FAERS Safety Report 17631714 (Version 1)
Quarter: 2020Q2

REPORT INFORMATION
  Report Type: Spontaneous
  Country: US (occurrence: US)
  Receive Date: 20200406
  Receipt Date: 20200406
  Transmission Date: 20200713
  Serious: Yes (Death)
  Sender: FDA-Public Use
  Company Number: None

PATIENT
  Age: 50 Year
  Sex: Female

DRUGS (1)
  1. IBRANCE [Suspect]
     Active Substance: PALBOCICLIB
     Indication: NEOPLASM MALIGNANT
     Dosage: ?          QUANTITY:21 TABLET(S);?
     Route: 048
     Dates: start: 20180601, end: 20191201

REACTIONS (5)
  - Pneumonitis [None]
  - Respiratory failure [None]
  - Pulmonary mass [None]
  - Pulmonary embolism [None]
  - Sinus disorder [None]

NARRATIVE: CASE EVENT DATE: 20190701
